FAERS Safety Report 9684244 (Version 1)
Quarter: 2013Q4

REPORT INFORMATION
  Report Type: Report from Study
  Country: JP (occurrence: JP)
  Receive Date: 20131112
  Receipt Date: 20131112
  Transmission Date: 20140711
  Serious: Yes (Other)
  Sender: FDA-Public Use
  Company Number: JP-VIIV HEALTHCARE LIMITED-B0862919A

PATIENT
  Age: 6 Decade
  Sex: Male
  Weight: 71 kg

DRUGS (16)
  1. LEXIVA [Suspect]
     Indication: HIV INFECTION
     Dosage: 1400MG TWICE PER DAY
     Route: 048
     Dates: start: 20050613
  2. EPIVIR [Suspect]
     Indication: HIV INFECTION
     Dosage: 150MG TWICE PER DAY
     Route: 048
     Dates: start: 20050401, end: 20110106
  3. ZIAGEN [Suspect]
     Indication: HIV INFECTION
     Dosage: 300MG TWICE PER DAY
     Route: 048
     Dates: start: 20050401, end: 20110106
  4. TRUVADA [Suspect]
     Indication: HIV INFECTION
     Route: 048
     Dates: start: 20110107
  5. PEGINTRON [Suspect]
     Indication: HEPATITIS C
     Route: 058
     Dates: start: 20120210, end: 20130107
  6. REBETOL [Suspect]
     Indication: HEPATITIS C
     Dosage: 400MCG TWICE PER DAY
     Route: 048
     Dates: start: 20120210, end: 20130107
  7. GASTER [Concomitant]
     Dosage: 20MG TWICE PER DAY
     Route: 065
     Dates: start: 20120401, end: 20120527
  8. VITAMEDIN [Concomitant]
     Dosage: 25MG THREE TIMES PER DAY
     Route: 065
     Dates: start: 20120401
  9. NEO-MINOPHAGEN-C [Concomitant]
     Indication: HEPATITIS C
     Dosage: 100ML THREE TIMES PER WEEK
     Route: 042
     Dates: end: 20120210
  10. BI-SIFROL [Concomitant]
     Indication: RESTLESS LEGS SYNDROME
     Route: 048
     Dates: start: 20120401, end: 20130106
  11. BI-SIFROL [Concomitant]
     Indication: RESTLESS LEGS SYNDROME
     Dosage: .5MG PER DAY
     Route: 048
     Dates: start: 20130107, end: 20130203
  12. BI-SIFROL [Concomitant]
     Indication: RESTLESS LEGS SYNDROME
     Dosage: .625MG PER DAY
     Route: 048
     Dates: start: 20130204
  13. TAKEPRON [Concomitant]
     Dosage: 15MG PER DAY
     Route: 048
     Dates: start: 20120527
  14. PAXIL [Concomitant]
     Indication: ADJUSTMENT DISORDER
     Dosage: 10MG PER DAY
     Route: 048
     Dates: start: 20120521, end: 20121210
  15. PAXIL CR [Concomitant]
     Indication: ADJUSTMENT DISORDER
     Dosage: 15MG PER DAY
     Route: 048
     Dates: start: 20121211
  16. LANDSEN [Concomitant]
     Indication: ANXIETY
     Route: 048
     Dates: start: 20130325

REACTIONS (5)
  - Pancytopenia [Not Recovered/Not Resolved]
  - Liver function test abnormal [Recovered/Resolved]
  - Facial wasting [Not Recovered/Not Resolved]
  - Adjustment disorder [Not Recovered/Not Resolved]
  - Ulna fracture [Not Recovered/Not Resolved]
